FAERS Safety Report 6034749-4 (Version None)
Quarter: 2009Q1

REPORT INFORMATION
  Report Type: 
  Country: None (occurrence: None)
  Receive Date: 20090112
  Receipt Date: 20090106
  Transmission Date: 20090719
  Serious: Yes (Hospitalization)
  Sender: FDA-Public Use
  Company Number: CA-JNJFOC-20090101277

PATIENT
  Sex: Female

DRUGS (1)
  1. TYLENOL W/ CODEINE NO. 2 [Suspect]
     Indication: DRUG USE FOR UNKNOWN INDICATION
     Route: 065

REACTIONS (2)
  - HEADACHE [None]
  - HOSPITALISATION [None]
